FAERS Safety Report 8382728 (Version 2)
Quarter: 2015Q1

REPORT INFORMATION
  Report Type: Report from Study
  Country: US (occurrence: US)
  Receive Date: 20120201
  Receipt Date: 20150303
  Transmission Date: 20150721
  Serious: Yes (Death)
  Sender: FDA-Public Use
  Company Number: US-ROCHE-1035097

PATIENT
  Sex: Female
  Weight: 80 kg

DRUGS (15)
  1. AVASTIN [Suspect]
     Active Substance: BEVACIZUMAB
     Route: 042
  2. IRINOTECAN [Concomitant]
     Active Substance: IRINOTECAN
     Route: 042
  3. ATROPINE [Concomitant]
     Active Substance: ATROPINE
     Route: 058
  4. RANITIDINE [Concomitant]
     Active Substance: RANITIDINE\RANITIDINE HYDROCHLORIDE
     Route: 065
  5. ALTACE [Concomitant]
     Active Substance: RAMIPRIL
     Route: 048
  6. RHINOCORT [Concomitant]
     Active Substance: BUDESONIDE
  7. ZOLPIDEM [Concomitant]
     Active Substance: ZOLPIDEM\ZOLPIDEM TARTRATE
     Dosage: EVERY NIGHT AT BED TIME
     Route: 065
  8. BENADRYL [Concomitant]
     Active Substance: DIPHENHYDRAMINE HYDROCHLORIDE
     Route: 065
  9. ALOXI [Concomitant]
     Active Substance: PALONOSETRON HYDROCHLORIDE
     Route: 042
  10. FUROSEMIDE. [Concomitant]
     Active Substance: FUROSEMIDE
     Route: 065
  11. EMEND [Concomitant]
     Active Substance: APREPITANT
     Route: 048
  12. DECADRON [Concomitant]
     Active Substance: DEXAMETHASONE
     Route: 048
  13. AVASTIN [Suspect]
     Active Substance: BEVACIZUMAB
     Indication: BRAIN NEOPLASM MALIGNANT
     Route: 042
     Dates: start: 20070228
  14. KYTRIL [Concomitant]
     Active Substance: GRANISETRON HYDROCHLORIDE
     Route: 042
  15. COGENTIN [Concomitant]
     Active Substance: BENZTROPINE MESYLATE
     Route: 048

REACTIONS (23)
  - Rash [Unknown]
  - Asthenia [Unknown]
  - Sinusitis [Unknown]
  - Headache [Unknown]
  - Pruritus [Unknown]
  - Change of bowel habit [Unknown]
  - Fatigue [Unknown]
  - Arthropod bite [Unknown]
  - Off label use [Unknown]
  - Dyspepsia [Unknown]
  - Vomiting [Unknown]
  - Amnesia [Unknown]
  - Cough [Unknown]
  - Pollakiuria [Unknown]
  - Nausea [Unknown]
  - Hyperhidrosis [Unknown]
  - Oropharyngeal pain [Unknown]
  - Death [Fatal]
  - Arthralgia [Unknown]
  - Mouth ulceration [Unknown]
  - Confusional state [Unknown]
  - Musculoskeletal stiffness [Unknown]
  - Faeces discoloured [Unknown]
